FAERS Safety Report 7646701-3 (Version None)
Quarter: 2011Q3

REPORT INFORMATION
  Report Type: 
  Country: None (occurrence: None)
  Receive Date: 20110801
  Receipt Date: 20110726
  Transmission Date: 20111222
  Serious: Yes (Hospitalization, Other)
  Sender: FDA-Public Use
  Company Number: US-BAYER-2010-003987

PATIENT
  Age: 49 Year
  Sex: Female
  Weight: 50.794 kg

DRUGS (4)
  1. VITAMIN B [Concomitant]
  2. DORYX [Concomitant]
     Dosage: 100 MG, UNK
  3. VITAMIN E [Concomitant]
  4. YAZ [Suspect]
     Indication: CONTRACEPTION
     Dosage: UNK
     Route: 048
     Dates: start: 20080401, end: 20090701

REACTIONS (3)
  - PULMONARY EMBOLISM [None]
  - PAIN [None]
  - THROMBOSIS [None]
